FAERS Safety Report 5251988-0 (Version None)
Quarter: 2007Q1

REPORT INFORMATION
  Report Type: 
  Country: None (occurrence: None)
  Receive Date: 20070226
  Receipt Date: 20061013
  Transmission Date: 20070707
  Serious: Yes (Death, Hospitalization)
  Sender: FDA-Public Use
  Company Number: DSA_29391_2007

PATIENT
  Age: 76 Year
  Sex: Male

DRUGS (9)
  1. HERBESSER ^TANABE^ [Suspect]
     Indication: ARTERIOSPASM CORONARY
     Dosage: 100 MG Q DAY PO
     Route: 048
     Dates: start: 20060118, end: 20060705
  2. HERBESSER ^TANABE^ [Suspect]
     Indication: HYPERTENSION
     Dosage: 100 MG Q DAY PO
     Route: 048
     Dates: start: 20060118, end: 20060705
  3. BEPRICOR [Suspect]
     Indication: HYPERTENSION
     Dosage: 200 MG Q DAY PO
     Route: 048
     Dates: start: 20020718, end: 20060705
  4. BEPRICOR [Suspect]
     Indication: HYPERTROPHIC CARDIOMYOPATHY
     Dosage: 200 MG Q DAY PO
     Route: 048
     Dates: start: 20020718, end: 20060705
  5. ARTIST [Suspect]
     Indication: HYPERTENSION
     Dosage: 10 MG Q DAY PO
     Route: 048
     Dates: start: 20020416, end: 20060705
  6. ARTIST [Suspect]
     Indication: HYPERTROPHIC CARDIOMYOPATHY
     Dosage: 10 MG Q DAY PO
     Route: 048
     Dates: start: 20020416, end: 20060705
  7. TANATRIL [Concomitant]
  8. LOCHOL [Concomitant]
  9. BLOPRESS [Concomitant]

REACTIONS (8)
  - BLOOD PRESSURE DECREASED [None]
  - BRADYCARDIA [None]
  - CARDIAC ARREST [None]
  - CARDIO-RESPIRATORY ARREST [None]
  - ELECTROCARDIOGRAM QT PROLONGED [None]
  - LOSS OF CONSCIOUSNESS [None]
  - MYDRIASIS [None]
  - VENTRICULAR FIBRILLATION [None]
